FAERS Safety Report 5484064-2 (Version None)
Quarter: 2007Q4

REPORT INFORMATION
  Report Type: 
  Country: None (occurrence: None)
  Receive Date: 20071012
  Receipt Date: 20071002
  Transmission Date: 20080405
  Serious: No
  Sender: FDA-Public Use
  Company Number: US-BAXTER-2007BH008056

PATIENT

DRUGS (1)
  1. BUMINATE 5% [Suspect]
     Indication: EXCHANGE BLOOD TRANSFUSION

REACTIONS (1)
  - SEPSIS [None]
